APPROVED DRUG PRODUCT: GRISEOFULVIN
Active Ingredient: GRISEOFULVIN, MICROSIZE
Strength: 500MG
Dosage Form/Route: TABLET;ORAL
Application: A091592 | Product #002 | TE Code: AB
Applicant: SANDOZ INC
Approved: Aug 7, 2013 | RLD: No | RS: Yes | Type: RX